FAERS Safety Report 10012950 (Version 1)
Quarter: 2014Q1

REPORT INFORMATION
  Report Type: Spontaneous
  Country: US (occurrence: US)
  Receive Date: 20140314
  Receipt Date: 20140314
  Transmission Date: 20141002
  Serious: No
  Sender: FDA-Public Use
  Company Number: US-009507513-1403USA002638

PATIENT
  Age: 20 Year
  Sex: Female
  Weight: 68.27 kg

DRUGS (7)
  1. NUVARING [Suspect]
     Indication: CONTRACEPTION
     Dosage: 0.015/0.12 MG NUVARING IN FOR 3 WEEKS THEN REMOVED FOR A WEEK
     Route: 067
     Dates: start: 20140211
  2. NUVARING [Suspect]
     Indication: MENSTRUATION IRREGULAR
  3. CALCIUM (UNSPECIFIED) [Concomitant]
  4. LAMOTRIGINE [Concomitant]
  5. VITAMINS (UNSPECIFIED) [Concomitant]
  6. OMEGA-3 MARINE TRIGLYCERIDES [Concomitant]
  7. GREEN TEA [Concomitant]

REACTIONS (2)
  - Metrorrhagia [Recovering/Resolving]
  - Menstruation delayed [Recovering/Resolving]
